FAERS Safety Report 17042039 (Version 2)
Quarter: 2019Q4

REPORT INFORMATION
  Report Type: Spontaneous
  Country: US (occurrence: US)
  Receive Date: 20191118
  Receipt Date: 20191227
  Transmission Date: 20200122
  Serious: Yes (Death)
  Sender: FDA-Public Use
  Company Number: US-VIFOR (INTERNATIONAL) INC.-VIT-2019-13193

PATIENT
  Age: 68 Year
  Sex: Male
  Weight: 93 kg

DRUGS (19)
  1. ASPIRIN CHILDREN [Concomitant]
     Active Substance: ASPIRIN
     Dosage: 1 TABLET
     Route: 048
  2. ISOSORBIDE MONONITRATE. [Concomitant]
     Active Substance: ISOSORBIDE MONONITRATE
     Dosage: 1 TABLET
     Route: 048
  3. SODIUM BICARBONATE. [Concomitant]
     Active Substance: SODIUM BICARBONATE
     Dosage: 2 TABLET
     Route: 048
  4. TYLENOL [Concomitant]
     Active Substance: ACETAMINOPHEN
     Dosage: 1 TABLET
     Route: 048
  5. QUETIAPINE. [Concomitant]
     Active Substance: QUETIAPINE
     Dosage: 1 TABLET
     Route: 048
  6. ATORVASTATIN [Concomitant]
     Active Substance: ATORVASTATIN
     Route: 048
  7. VITAMINE D [Concomitant]
     Active Substance: CHOLECALCIFEROL
     Dosage: 1 TABLET
  8. VITAMIN C [Concomitant]
     Active Substance: ASCORBIC ACID
     Dosage: 1 TABLET
     Route: 048
  9. NITROSTAT [Concomitant]
     Active Substance: NITROGLYCERIN
     Dosage: 1 TABLET
     Route: 060
  10. SENSIPAR [Concomitant]
     Active Substance: CINACALCET HYDROCHLORIDE
     Dosage: 2 TABLET
     Route: 048
  11. ALPRAZOLAM. [Concomitant]
     Active Substance: ALPRAZOLAM
     Dosage: 1 TABLET
     Route: 048
  12. FERROUS SULFATE. [Concomitant]
     Active Substance: FERROUS SULFATE
     Dosage: 1 TABLET
     Route: 048
  13. LIDOCAINE;PRILOCAINE [Concomitant]
     Dosage: 2.5-2.5%, APPLY A THIN LAYER TO DIALYSIS ACCESS 1HR PRIOR TO DIALYSIS
     Route: 061
  14. CARVEDILOL. [Concomitant]
     Active Substance: CARVEDILOL
     Dosage: 1 TABLET
     Route: 048
  15. FLORAJEN 3 [Concomitant]
     Active Substance: PROBIOTICS NOS
     Dosage: 1 CAPSULE
  16. PLAVIX [Concomitant]
     Active Substance: CLOPIDOGREL BISULFATE
     Dosage: 1 TABLET
     Route: 048
  17. SENSIPAR [Concomitant]
     Active Substance: CINACALCET HYDROCHLORIDE
     Dosage: 1 TABLET
     Route: 048
  18. VELPHORO [Suspect]
     Active Substance: FERRIC OXYHYDROXIDE
     Indication: HYPERPHOSPHATAEMIA
     Dosage: 2 TABLET
     Route: 048
     Dates: start: 20181210
  19. FERROUS SULFATE. [Concomitant]
     Active Substance: FERROUS SULFATE
     Dosage: 1 TABLET
     Route: 048

REACTIONS (1)
  - Death [Fatal]

NARRATIVE: CASE EVENT DATE: 20190603
